FAERS Safety Report 18724065 (Version 2)
Quarter: 2021Q1

REPORT INFORMATION
  Report Type: Spontaneous
  Country: US (occurrence: US)
  Receive Date: 20210111
  Receipt Date: 20210211
  Transmission Date: 20210419
  Serious: No
  Sender: FDA-Public Use
  Company Number: US-MYLANLABS-2020M1104717

PATIENT
  Sex: Female

DRUGS (5)
  1. MELOXICAM. [Concomitant]
     Active Substance: MELOXICAM
     Indication: HIP ARTHROPLASTY
     Dosage: 15 MILLIGRAM, QD (1 PILL A DAY)
  2. SPIRONOLACTONE. [Suspect]
     Active Substance: SPIRONOLACTONE
     Indication: HYPERTENSION
     Dosage: 2 DOSAGE FORM, QD
     Route: 048
  3. ATENOLOL. [Concomitant]
     Active Substance: ATENOLOL
     Indication: BLOOD PRESSURE ABNORMAL
     Dosage: 25 MILLIGRAM
  4. DEPO?ESTRADIOL [Concomitant]
     Active Substance: ESTRADIOL CYPIONATE
     Indication: TRANSGENDER OPERATION
     Dosage: 1 MILLIGRAM, Q2W (EVERY 14 DAYS)
     Dates: start: 20150520
  5. SPIRONOLACTONE. [Suspect]
     Active Substance: SPIRONOLACTONE
     Indication: BLOOD TESTOSTERONE ABNORMAL
     Dosage: 1 TIMES, QD
     Dates: start: 201505

REACTIONS (2)
  - Intentional product use issue [Unknown]
  - Hypotension [Unknown]
